FAERS Safety Report 6487334-4 (Version None)
Quarter: 2009Q4

REPORT INFORMATION
  Report Type: 
  Country: None (occurrence: None)
  Receive Date: 20091123
  Receipt Date: 20091021
  Transmission Date: 20100525
  Serious: No
  Sender: FDA-Public Use
  Company Number: 8053516

PATIENT
  Age: 37 Year
  Sex: Female
  Weight: 136.3 kg

DRUGS (6)
  1. CIMZIA [Suspect]
     Indication: COLITIS
     Dosage: 400 MG SC
     Route: 058
     Dates: start: 20090601
  2. PREVACID [Concomitant]
  3. LIALDA [Concomitant]
  4. ENTOCORT EC [Concomitant]
  5. IMURAN [Concomitant]
  6. SYNTHROID [Concomitant]

REACTIONS (4)
  - ALOPECIA [None]
  - NAUSEA [None]
  - OFF LABEL USE [None]
  - VOMITING [None]
